FAERS Safety Report 8037024-1 (Version None)
Quarter: 2012Q1

REPORT INFORMATION
  Report Type: 
  Country: None (occurrence: None)
  Receive Date: 20120111
  Receipt Date: 20120107
  Transmission Date: 20120608
  Serious: No
  Sender: FDA-Public Use
  Company Number: US-TEVA-316617USA

PATIENT
  Sex: Female

DRUGS (1)
  1. PLAN B ONE-STEP [Suspect]
     Indication: POST COITAL CONTRACEPTION
     Dosage: 1.5 MILLIGRAM;
     Route: 048
     Dates: start: 20120105, end: 20120105

REACTIONS (7)
  - ERYTHEMA [None]
  - VOMITING [None]
  - HEADACHE [None]
  - FATIGUE [None]
  - FEELING HOT [None]
  - DIZZINESS [None]
  - ABDOMINAL PAIN [None]
